FAERS Safety Report 4944538-7 (Version None)
Quarter: 2006Q1

REPORT INFORMATION
  Report Type: 
  Country: None (occurrence: None)
  Receive Date: 20060113
  Receipt Date: 20041229
  Transmission Date: 20060701
  Serious: Yes (Other)
  Sender: FDA-Public Use
  Company Number: HQWYE214717JUL04

PATIENT
  Age: 60 Year
  Sex: Female
  Weight: 85.81 kg

DRUGS (6)
  1. PREMPRO [Suspect]
     Indication: HORMONE REPLACEMENT THERAPY
     Dosage: ORAL
     Route: 048
     Dates: start: 20000101
  2. ESTRADERM [Suspect]
     Indication: HOT FLUSH
     Dates: start: 19990101
  3. ORTHO-EST [Suspect]
     Indication: HOT FLUSH
  4. PREMARIN [Suspect]
  5. PROVERA [Suspect]
     Indication: HOT FLUSH
     Dosage: ORAL
     Route: 048
     Dates: start: 19940101, end: 19981201
  6. DIOVAN [Concomitant]

REACTIONS (1)
  - BREAST CANCER [None]
